FAERS Safety Report 12088799 (Version 3)
Quarter: 2016Q2

REPORT INFORMATION
  Report Type: Report from Study
  Country: US (occurrence: US)
  Receive Date: 20160218
  Receipt Date: 20160419
  Transmission Date: 20160815
  Serious: Yes (Other)
  Sender: FDA-Public Use
  Company Number: US-GILEAD-2016-0198787

PATIENT
  Age: 79 Year
  Sex: Female

DRUGS (1)
  1. AMBRISENTAN [Suspect]
     Active Substance: AMBRISENTAN
     Indication: PRODUCT USED FOR UNKNOWN INDICATION
     Dosage: 10 MG, QD
     Route: 065
     Dates: start: 20081230

REACTIONS (9)
  - Tooth fracture [Unknown]
  - Dizziness [Unknown]
  - Arthropathy [Unknown]
  - Fatigue [Unknown]
  - Chest discomfort [Unknown]
  - Glaucoma [Unknown]
  - Unevaluable event [Unknown]
  - Autoimmune disorder [Unknown]
  - Dyspnoea exertional [Unknown]
